FAERS Safety Report 9901621 (Version 2)
Quarter: 2014Q1

REPORT INFORMATION
  Report Type: Spontaneous
  Country: US (occurrence: US)
  Receive Date: 20140217
  Receipt Date: 20140217
  Transmission Date: 20141002
  Serious: Yes (Other)
  Sender: FDA-Public Use
  Company Number: US-GILEAD-2011-0047667

PATIENT
  Sex: Female

DRUGS (2)
  1. LETAIRIS [Suspect]
     Indication: PULMONARY HYPERTENSION
     Dosage: 5 MG, UNK
     Route: 048
     Dates: start: 20111013
  2. LETAIRIS [Suspect]
     Indication: CARDIAC FAILURE CONGESTIVE

REACTIONS (4)
  - Cardiac failure [Recovered/Resolved]
  - Pulmonary congestion [Recovered/Resolved]
  - Fluid retention [Recovered/Resolved]
  - Drug intolerance [Recovered/Resolved]
